FAERS Safety Report 4984664-X (Version None)
Quarter: 2006Q2

REPORT INFORMATION
  Report Type: 
  Country: None (occurrence: None)
  Receive Date: 20060427
  Receipt Date: 20060417
  Transmission Date: 20061013
  Serious: Yes (Congenital Anomaly)
  Sender: FDA-Public Use
  Company Number: PHFR2006GB01459

PATIENT
  Age: 1 Day

DRUGS (2)
  1. GLEEVEC [Suspect]
     Dosage: UNK, UNK
     Route: 064
  2. INTRON A [Suspect]
     Dosage: UNK, UNK
     Route: 064

REACTIONS (1)
  - FINGER HYPOPLASIA [None]
